FAERS Safety Report 6842548-6 (Version None)
Quarter: 2010Q3

REPORT INFORMATION
  Report Type: 
  Country: None (occurrence: None)
  Receive Date: 20100714
  Receipt Date: 20070730
  Transmission Date: 20110219
  Serious: No
  Sender: FDA-Public Use
  Company Number: US-PFIZER INC-2007064155

PATIENT
  Sex: Female

DRUGS (2)
  1. CHANTIX [Suspect]
  2. NICOTINE [Concomitant]

REACTIONS (1)
  - POOR QUALITY SLEEP [None]
